FAERS Safety Report 5705944-6 (Version None)
Quarter: 2008Q2

REPORT INFORMATION
  Report Type: 
  Country: None (occurrence: None)
  Receive Date: 20080411
  Receipt Date: 20080404
  Transmission Date: 20081010
  Serious: Yes (Hospitalization)
  Sender: FDA-Public Use
  Company Number: WAES 0804BEL00005

PATIENT
  Age: 41 Year
  Sex: Male

DRUGS (2)
  1. ISENTRESS [Suspect]
     Indication: HIV INFECTION
     Dosage: 400 MG BID
     Route: 048
     Dates: start: 20071116
  2. DARUNAVIR [Concomitant]

REACTIONS (7)
  - ANOREXIA [None]
  - ARTHRALGIA [None]
  - HEAD INJURY [None]
  - HEADACHE [None]
  - ILL-DEFINED DISORDER [None]
  - PARAESTHESIA [None]
  - PRURITUS [None]
